FAERS Safety Report 8965438 (Version 1)
Quarter: 2012Q4

REPORT INFORMATION
  Report Type: 
  Country: GB (occurrence: GB)
  Receive Date: 20121213
  Receipt Date: 20121213
  Transmission Date: 20130627
  Serious: Yes (Other)
  Sender: FDA-Public Use
  Company Number: GB-PFIZER INC-2012309209

PATIENT
  Age: 77 Year
  Sex: Male
  Weight: 85 kg

DRUGS (9)
  1. ALFUZOSIN [Suspect]
     Indication: URINARY RETENTION
     Dosage: 2.5 mg, 2x/day
     Route: 048
     Dates: start: 20121119, end: 20121127
  2. ALFUZOSIN [Suspect]
     Indication: HAEMATURIA
  3. CALCICHEW-D3 [Concomitant]
     Indication: DRUG USE FOR UNKNOWN INDICATION
     Dosage: UNK
     Route: 065
  4. ASPIRIN [Concomitant]
     Indication: DRUG USE FOR UNKNOWN INDICATION
     Dosage: UNK
     Route: 065
  5. LANSOPRAZOLE [Concomitant]
     Indication: DRUG USE FOR UNKNOWN INDICATION
     Dosage: UNK
     Route: 065
  6. SENNA [Concomitant]
     Indication: DRUG USE FOR UNKNOWN INDICATION
     Dosage: UNK
     Route: 065
  7. MAGNESIUM HYDROXIDE [Concomitant]
     Indication: DRUG USE FOR UNKNOWN INDICATION
     Dosage: UNK
     Route: 065
  8. LAXIDO [Concomitant]
     Indication: DRUG USE FOR UNKNOWN INDICATION
     Dosage: UNK
     Route: 065
  9. FINASTERIDE [Concomitant]
     Indication: DRUG USE FOR UNKNOWN INDICATION
     Dosage: UNK
     Route: 065

REACTIONS (2)
  - Liver function test abnormal [Not Recovered/Not Resolved]
  - Off label use [Recovered/Resolved]
